FAERS Safety Report 19178868 (Version 1)
Quarter: 2021Q2

REPORT INFORMATION
  Report Type: Spontaneous
  Country: US (occurrence: US)
  Receive Date: 20210421
  Receipt Date: 20210421
  Transmission Date: 20210717
  Serious: No
  Sender: FDA-Public Use
  Company Number: None

PATIENT
  Age: 20 Year
  Sex: Female
  Weight: 51.75 kg

DRUGS (2)
  1. PRENATAL [Concomitant]
     Active Substance: VITAMINS
  2. SERTRALINE 25MG TABLET [Suspect]
     Active Substance: SERTRALINE HYDROCHLORIDE
     Indication: PERINATAL DEPRESSION
     Route: 048
     Dates: start: 20210223

REACTIONS (8)
  - Hyperhidrosis [None]
  - Decreased appetite [None]
  - Hypersomnia [None]
  - Dry mouth [None]
  - Constipation [None]
  - Agitation [None]
  - Libido decreased [None]
  - Fatigue [None]

NARRATIVE: CASE EVENT DATE: 20210317
